FAERS Safety Report 14505947 (Version 1)
Quarter: 2018Q1

REPORT INFORMATION
  Report Type: Report from Study
  Country: US (occurrence: US)
  Receive Date: 20180208
  Receipt Date: 20180208
  Transmission Date: 20180509
  Serious: Yes (Hospitalization)
  Sender: FDA-Public Use
  Company Number: US-JNJFOC-20171224849

PATIENT
  Age: 53 Year
  Sex: Female

DRUGS (31)
  1. PYRIDOXINE [Concomitant]
     Active Substance: PYRIDOXINE
     Indication: MYCOBACTERIUM TUBERCULOSIS COMPLEX TEST POSITIVE
     Route: 048
     Dates: start: 20161006
  2. PREMARIN [Concomitant]
     Active Substance: ESTROGENS, CONJUGATED
     Indication: VAGINAL INFECTION
     Dosage: IN THE MORNING
     Route: 048
     Dates: start: 20160825
  3. CIPRO [Concomitant]
     Active Substance: CIPROFLOXACIN HYDROCHLORIDE
     Indication: URINARY TRACT INFECTION
     Route: 048
     Dates: start: 20170505, end: 20170516
  4. FLAGYL [Concomitant]
     Active Substance: METRONIDAZOLE\METRONIDAZOLE HYDROCHLORIDE
     Indication: ENTERITIS
     Route: 048
     Dates: start: 20170505, end: 20170505
  5. SIMPONI ARIA [Suspect]
     Active Substance: GOLIMUMAB
     Indication: RHEUMATOID ARTHRITIS
     Route: 042
     Dates: start: 20161201, end: 20161201
  6. SIMPONI ARIA [Suspect]
     Active Substance: GOLIMUMAB
     Indication: RHEUMATOID ARTHRITIS
     Route: 042
     Dates: start: 20170324, end: 20170324
  7. METRONIDAZOLE. [Concomitant]
     Active Substance: METRONIDAZOLE
     Indication: ENTERITIS
     Route: 048
     Dates: start: 20170505, end: 20170516
  8. CIPRO [Concomitant]
     Active Substance: CIPROFLOXACIN HYDROCHLORIDE
     Indication: URINARY TRACT INFECTION
     Route: 042
     Dates: start: 20170505, end: 20170505
  9. FOLIC ACID. [Concomitant]
     Active Substance: FOLIC ACID
     Route: 048
     Dates: start: 20160818
  10. ISONIAZID. [Concomitant]
     Active Substance: ISONIAZID
     Indication: MYCOBACTERIUM TUBERCULOSIS COMPLEX TEST POSITIVE
     Route: 048
     Dates: start: 20161006
  11. METHOTREXATE. [Concomitant]
     Active Substance: METHOTREXATE
     Indication: RHEUMATOID ARTHRITIS
     Dosage: IN THE MORNING
     Route: 048
     Dates: start: 2009
  12. CIPRO [Concomitant]
     Active Substance: CIPROFLOXACIN HYDROCHLORIDE
     Indication: ENTERITIS
     Route: 048
     Dates: start: 20170505, end: 20170516
  13. ONDANSETRON [Concomitant]
     Active Substance: ONDANSETRON
     Indication: ENTERITIS
     Route: 048
     Dates: start: 20170505, end: 20170510
  14. SIMPONI ARIA [Suspect]
     Active Substance: GOLIMUMAB
     Indication: RHEUMATOID ARTHRITIS
     Route: 042
     Dates: start: 20161227, end: 20161227
  15. METHOTREXATE. [Concomitant]
     Active Substance: METHOTREXATE
     Route: 048
     Dates: start: 20141217
  16. MORPHINE [Concomitant]
     Active Substance: MORPHINE
     Indication: ENTERITIS
     Route: 042
     Dates: start: 20170505, end: 20170505
  17. SIMPONI ARIA [Suspect]
     Active Substance: GOLIMUMAB
     Indication: RHEUMATOID ARTHRITIS
     Route: 042
     Dates: start: 20170524, end: 20170524
  18. SIMPONI ARIA [Suspect]
     Active Substance: GOLIMUMAB
     Indication: RHEUMATOID ARTHRITIS
     Route: 042
     Dates: start: 20170707, end: 20170707
  19. TRAMADOL. [Concomitant]
     Active Substance: TRAMADOL
     Indication: ABDOMINAL PAIN
     Dosage: IN THE MORNING
     Route: 048
     Dates: start: 20160818
  20. ACETAMINOPHEN AND CODEINE [Concomitant]
     Active Substance: ACETAMINOPHEN\CODEINE PHOSPHATE
     Indication: ENTERITIS
     Route: 048
     Dates: start: 20170505, end: 20170510
  21. CIPRO [Concomitant]
     Active Substance: CIPROFLOXACIN HYDROCHLORIDE
     Indication: ENTERITIS
     Route: 042
     Dates: start: 20170505, end: 20170505
  22. FLAGYL [Concomitant]
     Active Substance: METRONIDAZOLE\METRONIDAZOLE HYDROCHLORIDE
     Indication: URINARY TRACT INFECTION
     Route: 048
     Dates: start: 20170505, end: 20170505
  23. SIMPONI ARIA [Suspect]
     Active Substance: GOLIMUMAB
     Indication: RHEUMATOID ARTHRITIS
     Route: 042
     Dates: start: 20170127, end: 20170127
  24. METRONIDAZOLE. [Concomitant]
     Active Substance: METRONIDAZOLE
     Indication: URINARY TRACT INFECTION
     Route: 048
     Dates: start: 20170505, end: 20170516
  25. ZOFRAN [Concomitant]
     Active Substance: ONDANSETRON HYDROCHLORIDE
     Indication: ENTERITIS
     Route: 042
     Dates: start: 20170526, end: 20170526
  26. CIPRO [Concomitant]
     Active Substance: CIPROFLOXACIN HYDROCHLORIDE
     Indication: ENTERITIS
     Route: 042
     Dates: start: 20170526, end: 20170526
  27. CIPRO [Concomitant]
     Active Substance: CIPROFLOXACIN HYDROCHLORIDE
     Indication: URINARY TRACT INFECTION
     Route: 042
     Dates: start: 20170526, end: 20170526
  28. FOLIC ACID. [Concomitant]
     Active Substance: FOLIC ACID
     Route: 048
     Dates: start: 2009
  29. NATURE-THROID [Concomitant]
     Active Substance: THYROID, PORCINE
     Indication: ENDOCRINE DISORDER
     Dosage: IN THE MORNING
     Route: 048
     Dates: start: 20160907
  30. BENTYL [Concomitant]
     Active Substance: DICYCLOMINE HYDROCHLORIDE
     Indication: ABDOMINAL DISTENSION
     Dosage: IN THE MORNING
     Route: 048
     Dates: start: 20160818
  31. ZOFRAN [Concomitant]
     Active Substance: ONDANSETRON HYDROCHLORIDE
     Indication: ENTERITIS
     Route: 042
     Dates: start: 20170505, end: 20170505

REACTIONS (1)
  - Gastroenteritis [Recovered/Resolved]

NARRATIVE: CASE EVENT DATE: 20170525
